FAERS Safety Report 4785751-1 (Version None)
Quarter: 2005Q4

REPORT INFORMATION
  Report Type: 
  Country: None (occurrence: None)
  Receive Date: 20051003
  Receipt Date: 20050908
  Transmission Date: 20060501
  Serious: Yes (Hospitalization, Other)
  Sender: FDA-Public Use
  Company Number: JP-MERCK-0509USA01259

PATIENT
  Age: 61 Year
  Sex: Male

DRUGS (5)
  1. COZAAR [Suspect]
     Route: 048
     Dates: start: 20050831, end: 20050901
  2. PANALDINE [Suspect]
     Route: 048
     Dates: start: 20050831, end: 20050901
  3. TAKEPRON [Suspect]
     Route: 048
     Dates: start: 20050831, end: 20050901
  4. ASPIRIN [Concomitant]
     Route: 048
     Dates: start: 20050831, end: 20050901
  5. CEFAZOLIN [Concomitant]
     Route: 051
     Dates: start: 20050831, end: 20050901

REACTIONS (2)
  - INTERSTITIAL LUNG DISEASE [None]
  - MULTI-ORGAN FAILURE [None]
